FAERS Safety Report 10357858 (Version 3)
Quarter: 2014Q4

REPORT INFORMATION
  Report Type: Spontaneous
  Country: CA (occurrence: CA)
  Receive Date: 20140801
  Receipt Date: 20141121
  Transmission Date: 20150528
  Serious: Yes (Life-Threatening, Hospitalization, Other)
  Sender: FDA-Public Use
  Company Number: CA-GLAXOSMITHKLINE-A1071803A

PATIENT
  Age: 87 Year
  Sex: Female
  Weight: 59.1 kg

DRUGS (11)
  1. VENTOLIN [Suspect]
     Active Substance: ALBUTEROL SULFATE
     Indication: CHRONIC OBSTRUCTIVE PULMONARY DISEASE
     Dosage: UNK, U
  2. WATER PILL [Concomitant]
     Active Substance: UNSPECIFIED INGREDIENT
  3. FUROSEMIDE. [Concomitant]
     Active Substance: FUROSEMIDE
     Route: 048
  4. RAMIPRIL. [Concomitant]
     Active Substance: RAMIPRIL
     Route: 048
  5. ALENDRONATE [Concomitant]
     Active Substance: ALENDRONATE SODIUM
  6. UNKNOWN MEDICATION [Concomitant]
     Active Substance: UNSPECIFIED INGREDIENT
  7. RANITIDINE [Concomitant]
     Active Substance: RANITIDINE\RANITIDINE HYDROCHLORIDE
     Route: 048
  8. WARFARIN [Concomitant]
     Active Substance: WARFARIN
  9. METOPROLOL [Concomitant]
     Active Substance: METOPROLOL
     Route: 048
  10. ADVAIR HFA [Suspect]
     Active Substance: FLUTICASONE PROPIONATE\SALMETEROL XINAFOATE
     Indication: CHRONIC OBSTRUCTIVE PULMONARY DISEASE
     Dosage: 2 PUFF(S), BID
     Dates: start: 201404, end: 201410
  11. ATROVENT [Concomitant]
     Active Substance: IPRATROPIUM BROMIDE

REACTIONS (24)
  - Pleural effusion [Unknown]
  - Pollakiuria [Unknown]
  - Left ventricular dysfunction [Unknown]
  - Productive cough [Not Recovered/Not Resolved]
  - Cardiac failure congestive [Recovered/Resolved]
  - Peripheral swelling [Unknown]
  - Ejection fraction decreased [Unknown]
  - Ventricular dysfunction [Unknown]
  - Overdose [Unknown]
  - Cardiac valve disease [Unknown]
  - Cardiac disorder [Unknown]
  - Mitral valve incompetence [Unknown]
  - Tricuspid valve incompetence [Unknown]
  - Pericardial effusion [Unknown]
  - Diastolic dysfunction [Unknown]
  - Rhinorrhoea [Unknown]
  - Pulmonary hypertension [Unknown]
  - Dyspnoea exertional [Not Recovered/Not Resolved]
  - Cardiac murmur [Unknown]
  - Atrial fibrillation [Unknown]
  - Dilatation ventricular [Unknown]
  - Aortic valve sclerosis [Unknown]
  - Left atrial dilatation [Unknown]
  - Throat irritation [Unknown]

NARRATIVE: CASE EVENT DATE: 20140708
